FAERS Safety Report 8529382-6 (Version None)
Quarter: 2012Q3

REPORT INFORMATION
  Report Type: 
  Country: None (occurrence: None)
  Receive Date: 20120723
  Receipt Date: 20120713
  Transmission Date: 20120928
  Serious: Yes (Other)
  Sender: FDA-Public Use
  Company Number: FR-JNJFOC-20120707010

PATIENT
  Sex: Male

DRUGS (3)
  1. RITONAVIR [Concomitant]
     Route: 065
  2. DARUNAVIR ETHANOLATE [Suspect]
     Indication: HIV INFECTION
     Route: 065
  3. TRUVADA [Suspect]
     Indication: HIV INFECTION
     Route: 065

REACTIONS (2)
  - HEPATITIS B DNA ASSAY POSITIVE [None]
  - LIVER DISORDER [None]
